FAERS Safety Report 7187261-3 (Version None)
Quarter: 2010Q4

REPORT INFORMATION
  Report Type: 
  Country: None (occurrence: None)
  Receive Date: 20101222
  Receipt Date: 20101221
  Transmission Date: 20110411
  Serious: Yes (Other)
  Sender: FDA-Public Use
  Company Number: AU-RB-010598-10

PATIENT
  Sex: Female

DRUGS (2)
  1. SUBUTEX [Suspect]
     Indication: DRUG DEPENDENCE
     Dosage: NO OTHER DOSING DETAILS ARE KNOWN
     Route: 048
     Dates: start: 20100331
  2. INSULIN [Concomitant]
     Indication: GESTATIONAL DIABETES
     Dosage: UNKNOWN DOSAGE INFORMATION
     Route: 065

REACTIONS (5)
  - DRUG EXPOSURE DURING PREGNANCY [None]
  - FOETAL DISTRESS SYNDROME [None]
  - GESTATIONAL DIABETES [None]
  - INCORRECT ROUTE OF DRUG ADMINISTRATION [None]
  - PROLONGED LABOUR [None]
